FAERS Safety Report 8722399 (Version 2)
Quarter: 2013Q4

REPORT INFORMATION
  Report Type: Spontaneous
  Country: US (occurrence: US)
  Receive Date: 20120814
  Receipt Date: 20131101
  Transmission Date: 20140711
  Serious: No
  Sender: FDA-Public Use
  Company Number: US-009507513-1208USA003319

PATIENT
  Sex: Male

DRUGS (1)
  1. PROSCAR [Suspect]
     Dosage: 5 MG, QD
     Route: 048

REACTIONS (1)
  - Ejaculation failure [Not Recovered/Not Resolved]
